FAERS Safety Report 5016767-8 (Version None)
Quarter: 2006Q2

REPORT INFORMATION
  Report Type: 
  Country: None (occurrence: None)
  Receive Date: 20060602
  Receipt Date: 20051103
  Transmission Date: 20061013
  Serious: Yes (Hospitalization)
  Sender: FDA-Public Use
  Company Number: BR-JNJFOC-20051101797

PATIENT
  Age: 12 Month
  Sex: Male
  Weight: 11 kg

DRUGS (2)
  1. TYLENOL (GELTAB) [Suspect]
  2. TYLENOL (GELTAB) [Suspect]
     Indication: DRUG USE FOR UNKNOWN INDICATION

REACTIONS (2)
  - INCORRECT DOSE ADMINISTERED [None]
  - VIRAL INFECTION [None]
